FAERS Safety Report 4810910-9 (Version None)
Quarter: 2005Q4

REPORT INFORMATION
  Report Type: 
  Country: None (occurrence: None)
  Receive Date: 20051025
  Receipt Date: 20050802
  Transmission Date: 20060501
  Serious: Yes (Death)
  Sender: FDA-Public Use
  Company Number: 2005BH001047

PATIENT
  Sex: 0

DRUGS (2)
  1. HEPARIN SODIUM [Suspect]
     Indication: ARTERIOGRAM CAROTID
  2. ANGIOMAX [Suspect]
     Dosage: 0.75 MG/KG; IV
     Route: 042

REACTIONS (1)
  - DEATH [None]
